FAERS Safety Report 11193255 (Version 3)
Quarter: 2016Q1

REPORT INFORMATION
  Report Type: Spontaneous
  Country: US (occurrence: US)
  Receive Date: 20150616
  Receipt Date: 20160314
  Transmission Date: 20160525
  Serious: No
  Sender: FDA-Public Use
  Company Number: US-ENDO PHARMACEUTICALS INC.-2015-000651

PATIENT
  Sex: Male

DRUGS (4)
  1. AVEED [Suspect]
     Active Substance: TESTOSTERONE UNDECANOATE
     Indication: BLOOD TESTOSTERONE DECREASED
     Route: 030
     Dates: start: 201507, end: 20160302
  2. AMNESTEEM [Concomitant]
     Active Substance: ISOTRETINOIN
     Indication: PRODUCT USED FOR UNKNOWN INDICATION
  3. AVEED [Suspect]
     Active Substance: TESTOSTERONE UNDECANOATE
     Indication: TESTICULAR FAILURE
  4. CLARAVIS [Concomitant]
     Active Substance: ISOTRETINOIN
     Indication: PRODUCT USED FOR UNKNOWN INDICATION

REACTIONS (1)
  - Drug ineffective [Not Recovered/Not Resolved]
